FAERS Safety Report 7512457-8 (Version None)
Quarter: 2011Q2

REPORT INFORMATION
  Report Type: 
  Country: None (occurrence: None)
  Receive Date: 20110531
  Receipt Date: 20110526
  Transmission Date: 20111010
  Serious: Yes (Other)
  Sender: FDA-Public Use
  Company Number: JP-PFIZER INC-2011088212

PATIENT
  Age: 75 Year
  Sex: Male

DRUGS (1)
  1. ZYVOX [Suspect]
     Indication: GRAFT INFECTION
     Dosage: 600 MG, 2X/DAY
     Dates: start: 20110407, end: 20110422

REACTIONS (1)
  - DEAFNESS [None]
